FAERS Safety Report 17095233 (Version 1)
Quarter: 2019Q4

REPORT INFORMATION
  Report Type: Spontaneous
  Country: US (occurrence: US)
  Receive Date: 20191104
  Receipt Date: 20191104
  Transmission Date: 20200122
  Serious: No
  Sender: FDA-Public Use
  Company Number: None

PATIENT
  Age: 38 Year
  Sex: Female

DRUGS (8)
  1. VITAMIN B12 TAB 1000MCG [Concomitant]
  2. FOLIC ACID TAB 1 MG [Concomitant]
  3. VRAYLAR CAP 3MG [Concomitant]
  4. MUPIROCIN OIN 2 % [Concomitant]
  5. BACLOFEN TAB 10MG [Concomitant]
  6. PANTOPRAZOLE TAB 40 MG [Concomitant]
  7. AMICAR TAB 500 MG [Concomitant]
  8. PROMACTA [Suspect]
     Active Substance: ELTROMBOPAG OLAMINE
     Route: 048

REACTIONS (3)
  - Dyspnoea [None]
  - Chest pain [None]
  - Product dose omission [None]

NARRATIVE: CASE EVENT DATE: 20191101
